FAERS Safety Report 15923312 (Version 2)
Quarter: 2019Q1

REPORT INFORMATION
  Report Type: Report from Study
  Country: US (occurrence: US)
  Receive Date: 20190206
  Receipt Date: 20190301
  Transmission Date: 20190417
  Serious: Yes (Other)
  Sender: FDA-Public Use
  Company Number: US-ALEXION PHARMACEUTICALS INC.-A201901614

PATIENT
  Sex: Male

DRUGS (2)
  1. SOLIRIS [Suspect]
     Active Substance: ECULIZUMAB
     Indication: ATYPICAL HAEMOLYTIC URAEMIC SYNDROME
     Dosage: UNK
     Route: 065
  2. SOLIRIS [Suspect]
     Active Substance: ECULIZUMAB
     Dosage: UNK
     Route: 042

REACTIONS (12)
  - Cataract [Unknown]
  - Blood alkaline phosphatase increased [Unknown]
  - Lymphadenopathy [Unknown]
  - Blood urea increased [Unknown]
  - Osteoarthritis [Unknown]
  - Blood urine present [Unknown]
  - Blood calcium decreased [Unknown]
  - Prostate cancer metastatic [Not Recovered/Not Resolved]
  - Protein urine present [Unknown]
  - Metastases to bone [Unknown]
  - Blood creatinine increased [Unknown]
  - Blood parathyroid hormone increased [Unknown]

NARRATIVE: CASE EVENT DATE: 20180629
